FAERS Safety Report 9142971 (Version 1)
Quarter: 2013Q1

REPORT INFORMATION
  Report Type: Spontaneous
  Country: US (occurrence: US)
  Receive Date: 20130306
  Receipt Date: 20130306
  Transmission Date: 20140127
  Serious: No
  Sender: FDA-Public Use
  Company Number: US-PFIZER INC-2013077677

PATIENT
  Age: 58 Year
  Sex: Female
  Weight: 60.32 kg

DRUGS (2)
  1. EFFEXOR XR [Suspect]
     Indication: DEPRESSION
     Dosage: 150 MG, 2X/DAY
     Route: 048
     Dates: start: 1999
  2. TRAZODONE HYDROCHLORIDE [Concomitant]
     Indication: SLEEP DISORDER
     Dosage: 200 MG, 1X/DAY AT DAILY NIGHT

REACTIONS (3)
  - Drug ineffective [Recovered/Resolved]
  - Malaise [Unknown]
  - Drug dose omission [Unknown]
